FAERS Safety Report 6231663-6 (Version None)
Quarter: 2009Q2

REPORT INFORMATION
  Report Type: 
  Country: None (occurrence: None)
  Receive Date: 20090616
  Receipt Date: 20090605
  Transmission Date: 20091009
  Serious: No
  Sender: FDA-Public Use
  Company Number: DE-MERCK-0903DEU00036

PATIENT
  Age: 66 Year
  Sex: Female
  Weight: 72 kg

DRUGS (9)
  1. VYTORIN [Suspect]
     Indication: HYPERCHOLESTEROLAEMIA
     Route: 048
     Dates: start: 20090115, end: 20090308
  2. DICLOFENAC SODIUM [Suspect]
     Indication: ARTHROPATHY
     Route: 048
     Dates: start: 20090308, end: 20090308
  3. DICLOFENAC SODIUM [Suspect]
     Indication: LIGAMENT SPRAIN
     Route: 048
     Dates: start: 20090308, end: 20090308
  4. HYDROCHLOROTHIAZIDE AND VALSARTAN [Concomitant]
     Indication: HYPERTENSION
     Route: 048
     Dates: start: 20081215
  5. ASPIRIN [Concomitant]
     Indication: HYPERTENSION
     Route: 048
     Dates: start: 20081215
  6. CLOPIDOGREL BISULFATE [Concomitant]
     Indication: CORONARY ARTERIAL STENT INSERTION
     Route: 048
     Dates: start: 20081215
  7. CLOPIDOGREL BISULFATE [Concomitant]
     Indication: CORONARY ARTERY DISEASE
     Route: 048
     Dates: start: 20081215
  8. BISOPROLOL [Concomitant]
     Indication: HYPERTENSION
     Route: 048
     Dates: start: 20081215
  9. BISOPROLOL [Concomitant]
     Indication: TACHYCARDIA
     Route: 048
     Dates: start: 20081215

REACTIONS (5)
  - ARTHRALGIA [None]
  - ARTHROPATHY [None]
  - DRUG INTERACTION [None]
  - LIGAMENT SPRAIN [None]
  - MYALGIA [None]
